FAERS Safety Report 9394861 (Version 5)
Quarter: 2014Q1

REPORT INFORMATION
  Report Type: Spontaneous
  Country: CO (occurrence: CO)
  Receive Date: 20130711
  Receipt Date: 20140305
  Transmission Date: 20141002
  Serious: Yes (Other)
  Sender: FDA-Public Use
  Company Number: CO-PFIZER INC-2013202506

PATIENT
  Age: 57 Year
  Sex: Male

DRUGS (6)
  1. SUTENT [Suspect]
     Indication: RENAL CANCER
     Dosage: 50 MG, 1X/DAY
     Route: 048
     Dates: start: 201210, end: 20130708
  2. SUTENT [Suspect]
     Dosage: 50 MG, 1X/DAY
     Route: 048
     Dates: end: 201310
  3. SUTENT [Suspect]
     Dosage: 50 MG, 1X/DAY
     Route: 048
     Dates: start: 20131018
  4. ENOXAPARIN [Suspect]
     Indication: VENA CAVA THROMBOSIS
     Dosage: 80 MG, 1X/DAY
     Route: 058
     Dates: start: 201210
  5. ENALAPRIL [Concomitant]
     Indication: HYPERTENSION
     Dosage: 0.5 MG, 1X/DAY
     Route: 048
     Dates: start: 201206
  6. AMLODIPINE [Concomitant]
     Indication: HYPERTENSION

REACTIONS (10)
  - Immunodeficiency [Recovered/Resolved]
  - Urticaria [Not Recovered/Not Resolved]
  - Pruritus [Not Recovered/Not Resolved]
  - Blister [Not Recovered/Not Resolved]
  - Burning sensation [Not Recovered/Not Resolved]
  - Gingival swelling [Not Recovered/Not Resolved]
  - Gingival erythema [Not Recovered/Not Resolved]
  - Oral discomfort [Not Recovered/Not Resolved]
  - Skin exfoliation [Not Recovered/Not Resolved]
  - Gait disturbance [Not Recovered/Not Resolved]
